FAERS Safety Report 8296138-1 (Version None)
Quarter: 2012Q2

REPORT INFORMATION
  Report Type: 
  Country: None (occurrence: None)
  Receive Date: 20120418
  Receipt Date: 20120412
  Transmission Date: 20120825
  Serious: Yes (Hospitalization)
  Sender: FDA-Public Use
  Company Number: AU-GLAXOSMITHKLINE-B0774696A

PATIENT
  Sex: Female

DRUGS (2)
  1. TYKERB [Suspect]
     Indication: BREAST CANCER
     Dosage: 250MG FIVE TIMES PER DAY
     Route: 048
     Dates: start: 20111129, end: 20120217
  2. XELODA [Suspect]
     Indication: BREAST CANCER METASTATIC
     Dosage: 500MG SIX TIMES PER DAY
     Route: 048
     Dates: start: 20111129, end: 20120217

REACTIONS (4)
  - DRUG INEFFECTIVE [None]
  - ORAL PAIN [None]
  - LOWER RESPIRATORY TRACT INFECTION [None]
  - DEVICE RELATED INFECTION [None]
